FAERS Safety Report 9128112 (Version 3)
Quarter: 2013Q3

REPORT INFORMATION
  Report Type: Spontaneous
  Country: US (occurrence: US)
  Receive Date: 20130125
  Receipt Date: 20130809
  Transmission Date: 20140515
  Serious: Yes (Hospitalization)
  Sender: FDA-Public Use
  Company Number: US-BAYER-2013-007380

PATIENT
  Age: 30 Year
  Sex: Female
  Weight: 74.38 kg

DRUGS (7)
  1. YASMIN [Suspect]
     Indication: CONTRACEPTION
     Dosage: UNK
     Dates: start: 20070607, end: 20110313
  2. ZOFRAN [Concomitant]
  3. PROAIR HFA [Concomitant]
  4. ALBUTEROL [Concomitant]
     Indication: ASTHMA
     Dosage: UNK
     Dates: start: 201102
  5. VANCOMYCIN [Concomitant]
     Indication: PYREXIA
  6. VANCOMYCIN [Concomitant]
     Indication: PHLEBITIS
  7. TYLENOL [PARACETAMOL] [Concomitant]
     Dosage: 650 MG, UNK

REACTIONS (8)
  - Cerebellar infarction [Not Recovered/Not Resolved]
  - Thrombophlebitis [None]
  - Cerebrovascular accident [None]
  - Injury [None]
  - Pain [Not Recovered/Not Resolved]
  - Anxiety [None]
  - Anhedonia [None]
  - Depression [Not Recovered/Not Resolved]
